FAERS Safety Report 4835597-0 (Version None)
Quarter: 2005Q4

REPORT INFORMATION
  Report Type: 
  Country: None (occurrence: None)
  Receive Date: 20051123
  Receipt Date: 20051115
  Transmission Date: 20060501
  Serious: Yes (Hospitalization)
  Sender: FDA-Public Use
  Company Number: JP-SOLVAY-00205003883

PATIENT
  Age: 63 Year
  Sex: Male
  Weight: 74 kg

DRUGS (14)
  1. PANALDINE [Concomitant]
     Indication: ILL-DEFINED DISORDER
     Dosage: DAILY DOSE:  UNKNOWN
     Route: 048
  2. COVERSYL [Suspect]
     Indication: HYPERTENSION
     Dosage: DAILY DOSE: 2 MILLIGRAM(S)
     Route: 048
     Dates: start: 20050827, end: 20050831
  3. COVERSYL [Suspect]
     Dosage: DAILY DOSE: 2 MILLIGRAM(S)
     Route: 048
     Dates: start: 20050917, end: 20050917
  4. ASPIRIN [Concomitant]
     Indication: ILL-DEFINED DISORDER
     Dosage: DAILY DOSE:  UNKNOWN
     Route: 048
  5. BASEN [Suspect]
     Indication: DIABETES MELLITUS
     Dosage: DAILY DOSE: .3 MILLIGRAM(S)
     Route: 048
     Dates: start: 20050917, end: 20050922
  6. LIVALO KOWA [Concomitant]
     Indication: ILL-DEFINED DISORDER
     Dosage: DAILY DOSE:  UNKNOWN
     Route: 065
     Dates: start: 20050910, end: 20050922
  7. SIGMART [Concomitant]
     Indication: ILL-DEFINED DISORDER
     Dosage: DAILY DOSE:  UNKNOWN
     Route: 065
     Dates: start: 20050826
  8. COSPANON [Concomitant]
     Indication: ILL-DEFINED DISORDER
     Dosage: DAILY DOSE:  UNKNOWN
     Route: 065
  9. URSO [Concomitant]
     Indication: ILL-DEFINED DISORDER
     Dosage: DAILY DOSE:  UNKNOWN
     Route: 065
     Dates: start: 20050906, end: 20050929
  10. TIENAM [Concomitant]
     Indication: ILL-DEFINED DISORDER
     Dosage: DAILY DOSE:  UNKNOWN
     Route: 065
     Dates: start: 20050906, end: 20050916
  11. MAGNESIUM OXIDE [Concomitant]
     Indication: ILL-DEFINED DISORDER
     Dosage: DAILY DOSE:  UNKNOWN
     Route: 065
     Dates: start: 20050827, end: 20050926
  12. KAYEXALATE [Concomitant]
     Indication: ILL-DEFINED DISORDER
     Dosage: DAILY DOSE:  UNKNOWN
     Route: 065
     Dates: start: 20050909, end: 20050922
  13. PURSENNID [Concomitant]
     Indication: ILL-DEFINED DISORDER
     Dosage: DAILY DOSE:  UNKNOWN
     Route: 065
     Dates: start: 20050910
  14. PROTECADIN [Concomitant]
     Indication: ILL-DEFINED DISORDER
     Dosage: DAILY DOSE:  UNKNOWN
     Route: 065
     Dates: start: 20050910, end: 20050922

REACTIONS (8)
  - ACUTE MYOCARDIAL INFARCTION [None]
  - CHOLANGITIS ACUTE [None]
  - DRUG ERUPTION [None]
  - EOSINOPHILIA [None]
  - HAEMODIALYSIS [None]
  - LYMPHOCYTE STIMULATION TEST POSITIVE [None]
  - RENAL FAILURE [None]
  - RENAL IMPAIRMENT [None]
